FAERS Safety Report 7021946-4 (Version None)
Quarter: 2010Q3

REPORT INFORMATION
  Report Type: 
  Country: None (occurrence: None)
  Receive Date: 20100930
  Receipt Date: 20100907
  Transmission Date: 20110219
  Serious: Yes (Hospitalization, Other)
  Sender: FDA-Public Use
  Company Number: US-BAYER-200942164NA

PATIENT
  Age: 38 Year
  Sex: Female
  Weight: 97 kg

DRUGS (14)
  1. YAZ [Suspect]
     Indication: POLYCYSTIC OVARIES
     Route: 048
     Dates: start: 20070831, end: 20071231
  2. LORAZEPAM [Concomitant]
     Route: 065
  3. ATACAND [Concomitant]
     Route: 065
  4. ADVIL LIQUI-GELS [Concomitant]
     Route: 065
  5. AMOXICILLIN [Concomitant]
     Route: 065
  6. CIPROFLOXACIN [Concomitant]
     Route: 065
  7. CEPHALEXIN [Concomitant]
     Route: 065
  8. EMERGEN-C [Concomitant]
     Route: 065
  9. METFORMIN [Concomitant]
     Dosage: UNIT DOSE: 1000 MG
     Route: 065
  10. CYMBALTA [Concomitant]
     Route: 065
     Dates: end: 20080101
  11. LIBRIUM [Concomitant]
     Route: 065
  12. FISH OIL [Concomitant]
     Dosage: 1 CAPSULE DAILY
     Route: 065
  13. VITAMIN E [Concomitant]
     Route: 065
  14. CENTRUM [Concomitant]
     Route: 065

REACTIONS (12)
  - ABDOMINAL TENDERNESS [None]
  - ATELECTASIS [None]
  - BILIARY DYSKINESIA [None]
  - CHEST DISCOMFORT [None]
  - DIARRHOEA [None]
  - EARLY SATIETY [None]
  - FATIGUE [None]
  - GASTROOESOPHAGEAL REFLUX DISEASE [None]
  - HEPATIC STEATOSIS [None]
  - NAUSEA [None]
  - POLYCYSTIC OVARIES [None]
  - VOMITING [None]
